FAERS Safety Report 4467843-X (Version None)
Quarter: 2004Q4

REPORT INFORMATION
  Report Type: 
  Country: None (occurrence: None)
  Receive Date: 20041004
  Receipt Date: 20040922
  Transmission Date: 20050328
  Serious: Yes (Death, Life-Threatening, Hospitalization, Disabling)
  Sender: FDA-Public Use
  Company Number: 208829

PATIENT
  Age: 69 Year
  Sex: Male

DRUGS (10)
  1. ACTILYSE (ALTEPLASE) PWDR + SOLVENT, INFUSION SOLN [Suspect]
     Indication: ISCHAEMIC STROKE
     Dosage: 63 MG, SINGLE, INTRAVENOUS
     Route: 042
     Dates: start: 20040817, end: 20040817
  2. DIGOXIN [Concomitant]
  3. KALIPOR (POTASSIUM CHLORIDE) [Concomitant]
  4. EUPHYLLIN (AMINOPHYLLINE) [Concomitant]
  5. METOCARD (METOPROLOL TARTRATE) [Concomitant]
  6. SPIRONOL (SPIRONOLACTONE) [Concomitant]
  7. OMEPRAZOLE [Concomitant]
  8. ISOPTIN [Concomitant]
  9. BISACODYL (BISACODYL) [Concomitant]
  10. AUGMENTIN (AMOXICILLIN, CLAVULANATE POTASSIUM) [Concomitant]

REACTIONS (9)
  - ATRIAL FIBRILLATION [None]
  - BRONCHIAL INFECTION [None]
  - CARDIAC FAILURE [None]
  - CARDIAC FAILURE CHRONIC [None]
  - CARDIO-RESPIRATORY ARREST [None]
  - CYANOSIS [None]
  - GENERAL PHYSICAL HEALTH DETERIORATION [None]
  - PULMONARY OEDEMA [None]
  - URINARY TRACT INFECTION [None]
